FAERS Safety Report 10334143 (Version 4)
Quarter: 2014Q3

REPORT INFORMATION
  Report Type: Spontaneous
  Country: MU (occurrence: MU)
  Receive Date: 20140723
  Receipt Date: 20140813
  Transmission Date: 20150326
  Serious: Yes (Disabling, Other)
  Sender: FDA-Public Use
  Company Number: MU-ROCHE-1433157

PATIENT
  Sex: Male

DRUGS (1)
  1. AVASTIN [Suspect]
     Active Substance: BEVACIZUMAB
     Indication: AGE-RELATED MACULAR DEGENERATION
     Route: 065

REACTIONS (4)
  - Off label use [Unknown]
  - Blindness [Not Recovered/Not Resolved]
  - Suspected transmission of an infectious agent via product [Unknown]
  - Infection [Unknown]
